FAERS Safety Report 8959236 (Version 2)
Quarter: 2013Q1

REPORT INFORMATION
  Report Type: Spontaneous
  Country: US (occurrence: US)
  Receive Date: 20121211
  Receipt Date: 20130116
  Transmission Date: 20140127
  Serious: Yes (Hospitalization)
  Sender: FDA-Public Use
  Company Number: US-B.I. PHARMACEUTICALS,INC./RIDGEFIELD-2012-BI-02534BP

PATIENT
  Sex: Male

DRUGS (7)
  1. PRADAXA [Suspect]
     Indication: ATRIAL FIBRILLATION
     Dosage: 300 MG
     Route: 048
     Dates: start: 20120906, end: 20121008
  2. MULTAQ [Concomitant]
  3. BISOPROLOL [Concomitant]
     Dosage: 5 MG
  4. CRESTOR [Concomitant]
     Dosage: 10 MG
  5. Q10 [Concomitant]
     Dosage: 75 MG
  6. B COMPLEX [Concomitant]
  7. FISH OIL [Concomitant]

REACTIONS (2)
  - Cardioversion [Unknown]
  - Post procedural stroke [Recovered/Resolved with Sequelae]
